FAERS Safety Report 8137358 (Version 2)
Quarter: 2013Q4

REPORT INFORMATION
  Report Type: Report from Study
  Country: GB (occurrence: GB)
  Receive Date: 20110915
  Receipt Date: 20131210
  Transmission Date: 20140711
  Serious: Yes (Hospitalization, Other)
  Sender: FDA-Public Use
  Company Number: GB-MILLENNIUM PHARMACEUTICALS, INC.-2007-02490

PATIENT
  Sex: 0

DRUGS (19)
  1. VELCADE [Suspect]
     Indication: PLASMA CELL MYELOMA
     Dosage: 1.30 MG/M2, UNK
     Route: 042
     Dates: start: 20070522
  2. IDARUBICIN [Suspect]
     Indication: PLASMA CELL MYELOMA
     Dosage: 5 MG/M2, UNK
     Route: 048
     Dates: start: 20070525
  3. MELPHALAN [Suspect]
     Indication: PLASMA CELL MYELOMA
     Dosage: 15 MG/M2, UNK
     Route: 042
     Dates: start: 20070525
  4. VITAMIN C [Concomitant]
     Indication: PRODUCT USED FOR UNKNOWN INDICATION
  5. FUROSEMIDE [Concomitant]
  6. MULTIVITAMINS [Concomitant]
     Indication: PRODUCT USED FOR UNKNOWN INDICATION
  7. LORATADINE [Concomitant]
  8. LACTULOSE [Concomitant]
  9. SALBUTAMOL [Concomitant]
  10. ORAMORPH [Concomitant]
  11. BECLOMETHASONE AQUEOUS [Concomitant]
  12. COD-LIVER OIL [Concomitant]
  13. PRIMROSE OIL [Concomitant]
  14. MEBEVERINE HYDROCHLORIDE [Concomitant]
  15. ASPIRIN [Concomitant]
  16. MST [Concomitant]
  17. OMEPRAZOLE [Concomitant]
  18. FLUOXETINE [Concomitant]
  19. AMITRIPTYLINE [Concomitant]

REACTIONS (2)
  - Infective exacerbation of chronic obstructive airways disease [Recovered/Resolved]
  - Neutropenic sepsis [Recovered/Resolved]
